FAERS Safety Report 18963702 (Version 4)
Quarter: 2021Q2

REPORT INFORMATION
  Report Type: Report from Study
  Country: US (occurrence: US)
  Receive Date: 20210303
  Receipt Date: 20210510
  Transmission Date: 20210717
  Serious: No
  Sender: FDA-Public Use
  Company Number: US-TAKEDA-2021TUS011617

PATIENT
  Age: 44 Year
  Sex: Female
  Weight: 59 kg

DRUGS (14)
  1. HUMAN NORMAL IMMUNOGLOBULIN; LIQUID [Suspect]
     Active Substance: HUMAN IMMUNOGLOBULIN G
     Indication: DERMATOMYOSITIS
     Dosage: 50 GRAM
     Route: 042
  2. DIPHENHYDRAMINE. [Concomitant]
     Active Substance: DIPHENHYDRAMINE
  3. HUMAN NORMAL IMMUNOGLOBULIN; LIQUID [Suspect]
     Active Substance: HUMAN IMMUNOGLOBULIN G
     Dosage: 50 GRAM
     Route: 042
     Dates: start: 20210306
  4. NORMAL SALINE [Concomitant]
     Active Substance: SODIUM CHLORIDE
  5. LIDOCAINE. [Concomitant]
     Active Substance: LIDOCAINE
  6. SODIUM CHLORIDE. [Concomitant]
     Active Substance: SODIUM CHLORIDE
     Dosage: UNK
     Route: 065
  7. VITAMINS NOS [Concomitant]
     Active Substance: VITAMINS
  8. SOLU?MEDROL [Concomitant]
     Active Substance: METHYLPREDNISOLONE SODIUM SUCCINATE
  9. VITAMIN D2 [Concomitant]
     Active Substance: ERGOCALCIFEROL
  10. VITAMIN D NOS [Concomitant]
     Active Substance: VITAMIN D NOS
  11. RECLIPSEN [Concomitant]
     Active Substance: DESOGESTREL\ETHINYL ESTRADIOL
  12. ACETAMINOPHEN. [Concomitant]
     Active Substance: ACETAMINOPHEN
  13. HEPARIN [Concomitant]
     Active Substance: HEPARIN SODIUM
  14. EPINEPHRINE. [Concomitant]
     Active Substance: EPINEPHRINE

REACTIONS (8)
  - Infusion related reaction [Unknown]
  - Fatigue [Unknown]
  - Rash pruritic [Unknown]
  - Off label use [Unknown]
  - COVID-19 [Recovering/Resolving]
  - Headache [Unknown]
  - Anxiety [Unknown]
  - Rash [Unknown]

NARRATIVE: CASE EVENT DATE: 20210214
